FAERS Safety Report 16831194 (Version 1)
Quarter: 2019Q3

REPORT INFORMATION
  Report Type: Spontaneous
  Country: IN (occurrence: IN)
  Receive Date: 20190920
  Receipt Date: 20190920
  Transmission Date: 20191005
  Serious: Yes (Other)
  Sender: FDA-Public Use
  Company Number: IN-ROCHE-2417172

PATIENT

DRUGS (2)
  1. RIFAMPICIN [Interacting]
     Active Substance: RIFAMPIN
     Indication: IDIOPATHIC PULMONARY FIBROSIS
     Route: 065
  2. PIRFENIDONE. [Suspect]
     Active Substance: PIRFENIDONE
     Indication: IDIOPATHIC PULMONARY FIBROSIS
     Route: 065

REACTIONS (3)
  - Drug interaction [Unknown]
  - Dermatitis exfoliative [Unknown]
  - Tuberculosis [Unknown]
